FAERS Safety Report 18732147 (Version 4)
Quarter: 2021Q1

REPORT INFORMATION
  Report Type: Spontaneous
  Country: CA (occurrence: CA)
  Receive Date: 20210113
  Receipt Date: 20210312
  Transmission Date: 20210419
  Serious: Yes (Other)
  Sender: FDA-Public Use
  Company Number: CA-CELLTRION INC.-2019CA028737

PATIENT

DRUGS (9)
  1. DIPHENHYDRAMINE. [Concomitant]
     Active Substance: DIPHENHYDRAMINE
     Indication: PREMEDICATION
     Dosage: 25?50 MG
     Route: 042
  2. BENADRYL [Concomitant]
     Active Substance: DIPHENHYDRAMINE HYDROCHLORIDE
     Indication: PREMEDICATION
     Dosage: 25?50 MG
     Route: 042
  3. INFLECTRA [Suspect]
     Active Substance: INFLIXIMAB-DYYB
     Dosage: 10 MG/KG AT 0, 2 AND 6 WEEKS, THEN EVERY 8 WEEKS
     Route: 042
     Dates: start: 20201216
  4. INFLECTRA [Suspect]
     Active Substance: INFLIXIMAB-DYYB
     Dosage: 10 MG/KG AT 0, 2 AND 6 WEEKS, THEN EVERY 8 WEEKS
     Route: 042
     Dates: start: 20201230
  5. INFLECTRA [Suspect]
     Active Substance: INFLIXIMAB-DYYB
     Dosage: 10 MG/KG AT 0, 2 AND 6 WEEKS, THEN EVERY 8 WEEKS
     Route: 042
     Dates: start: 20210129
  6. COSENTYX [Concomitant]
     Active Substance: SECUKINUMAB
     Dosage: 3000 MG, EVERY 2 WEEKS
     Route: 058
     Dates: start: 201611
  7. INFLECTRA [Suspect]
     Active Substance: INFLIXIMAB-DYYB
     Indication: ANKYLOSING SPONDYLITIS
     Dosage: 500 MG, AT 0, 2, 6, EVERY 8 WEEKS
     Route: 042
     Dates: start: 20190307
  8. ETODOLAC. [Concomitant]
     Active Substance: ETODOLAC
     Dosage: 300 MG, 2X/DAY
     Dates: start: 20180108
  9. INFLECTRA [Suspect]
     Active Substance: INFLIXIMAB-DYYB
     Indication: CROHN^S DISEASE
     Dosage: 500 MG, AT 0, 2, 6, EVERY 8 WEEKS
     Route: 042
     Dates: start: 20190321

REACTIONS (19)
  - Product use issue [Unknown]
  - Neurogenic shock [Unknown]
  - Insomnia [Unknown]
  - Dyspepsia [Not Recovered/Not Resolved]
  - Dizziness [Unknown]
  - Dyspnoea [Unknown]
  - Abdominal pain upper [Not Recovered/Not Resolved]
  - Inflammation [Not Recovered/Not Resolved]
  - Hot flush [Not Recovered/Not Resolved]
  - Loss of consciousness [Unknown]
  - Presyncope [Unknown]
  - Migraine [Unknown]
  - Rash [Not Recovered/Not Resolved]
  - Off label use [Unknown]
  - Syncope [Unknown]
  - Gait disturbance [Unknown]
  - Photophobia [Unknown]
  - Anxiety [Unknown]
  - Abdominal pain [Not Recovered/Not Resolved]

NARRATIVE: CASE EVENT DATE: 2019
